FAERS Safety Report 5071537-X (Version None)
Quarter: 2006Q3

REPORT INFORMATION
  Report Type: 
  Country: None (occurrence: None)
  Receive Date: 20060803
  Receipt Date: 20060803
  Transmission Date: 20061208
  Serious: Yes (Hospitalization)
  Sender: FDA-Public Use
  Company Number: None

PATIENT
  Age: 62 Year
  Sex: Male
  Weight: 105 kg

DRUGS (2)
  1. LISINOPRIL [Suspect]
     Indication: BLOOD PRESSURE
     Dosage: 20 MG PO DAILY
     Route: 048
     Dates: start: 20060424, end: 20060610
  2. LISINOPRIL [Suspect]
     Indication: RENAL DISORDER
     Dosage: 20 MG PO DAILY
     Route: 048
     Dates: start: 20060424, end: 20060610

REACTIONS (1)
  - SWOLLEN TONGUE [None]
